FAERS Safety Report 7597041-2 (Version None)
Quarter: 2011Q3

REPORT INFORMATION
  Report Type: 
  Country: None (occurrence: None)
  Receive Date: 20110708
  Receipt Date: 20110704
  Transmission Date: 20111222
  Serious: Yes (Other)
  Sender: FDA-Public Use
  Company Number: CA-PFIZER INC-2011101222

PATIENT
  Age: 40 Year
  Sex: Female
  Weight: 54.4 kg

DRUGS (5)
  1. LEVONORGESTREL + ETHINYL ESTRADIOL [Suspect]
     Indication: EPILEPSY
  2. TOPIRAMATE [Suspect]
     Indication: EPILEPSY
     Dosage: 100 MG, 2X/DAY
     Dates: start: 19960101
  3. KEPPRA [Suspect]
     Indication: EPILEPSY
     Dosage: 1000 MG (2X500MG), 2X/DAY
     Dates: start: 20050101
  4. CITALOPRAM [Concomitant]
     Dosage: 20 MG, 1X/DAY
     Dates: start: 20030101
  5. LEVONORGESTREL + ETHINYL ESTRADIOL [Suspect]
     Indication: OFF LABEL USE
     Dosage: 0.3 MG, 1X/DAY
     Dates: start: 20110301

REACTIONS (4)
  - PETIT MAL EPILEPSY [None]
  - DIZZINESS [None]
  - VAGINAL DISCHARGE [None]
  - FEELING HOT [None]
